FAERS Safety Report 8417436-4 (Version None)
Quarter: 2012Q2

REPORT INFORMATION
  Report Type: 
  Country: None (occurrence: None)
  Receive Date: 20120606
  Receipt Date: 20120601
  Transmission Date: 20120825
  Serious: Yes (Hospitalization, Other)
  Sender: FDA-Public Use
  Company Number: BE-AMGEN-BELSP2012014958

PATIENT
  Age: 74 Year
  Sex: Female

DRUGS (16)
  1. ACETYLSALICYLZUUR [Concomitant]
     Indication: CARDIOVASCULAR INSUFFICIENCY
     Dosage: 100 MG, QD
     Route: 048
     Dates: start: 20060101
  2. XANTHIUM [Concomitant]
  3. ONBREZ [Concomitant]
     Dosage: 300 MG, QD
  4. SYMBICORT [Concomitant]
  5. UNI DIAMICRON [Concomitant]
     Indication: DIABETES MELLITUS
     Dosage: 30 MG, UNK
  6. SPIRIVA [Concomitant]
     Dosage: UNK
  7. PRIMPERAN TAB [Concomitant]
  8. PANTOPRAZOLE [Concomitant]
     Dosage: 40 MG, QD
  9. OXYGEN [Concomitant]
     Dosage: 1 L, UNK
  10. PROLIA [Suspect]
     Indication: PRODUCT USED FOR UNKNOWN INDICATION
     Dosage: UNK
     Route: 030
     Dates: start: 20110914
  11. ZOCOR [Concomitant]
     Indication: HYPERCHOLESTEROLAEMIA
     Dosage: 40 MG, QD
     Route: 048
  12. ATACAND [Concomitant]
     Indication: PULMONARY HYPERTENSION
     Dosage: 16 MG, QD
  13. DUOVENT [Concomitant]
  14. MAGNESIUM [Concomitant]
  15. PROPAFENONE HCL [Concomitant]
     Indication: CARDIAC FAILURE CONGESTIVE
     Dosage: 150 MG, BID
     Route: 048
  16. CACIT D3 [Concomitant]

REACTIONS (8)
  - HYPONATRAEMIA [None]
  - ROSACEA [None]
  - OEDEMA PERIPHERAL [None]
  - INCORRECT ROUTE OF DRUG ADMINISTRATION [None]
  - POLYCHONDRITIS [None]
  - CHRONIC OBSTRUCTIVE PULMONARY DISEASE [None]
  - HERPES ZOSTER [None]
  - HAEMANGIOMA OF SKIN [None]
